FAERS Safety Report 24613659 (Version 1)
Quarter: 2024Q4

REPORT INFORMATION
  Report Type: Spontaneous
  Country: DK (occurrence: DK)
  Receive Date: 20241113
  Receipt Date: 20241113
  Transmission Date: 20250114
  Serious: Yes (Other)
  Sender: SANDOZ
  Company Number: None

PATIENT
  Age: 1 Decade
  Sex: Female
  Weight: 16 kg

DRUGS (3)
  1. TOBRADEX [Suspect]
     Active Substance: DEXAMETHASONE\TOBRAMYCIN
     Dosage: UNK (09OCT2018-11OCT2018 1 DROP IN LEFT EYE 6 TIMES DAILY.12OCT2018-29OCT 2018 1 DROP IN LEFT EYE 3
     Route: 047
     Dates: start: 20181009, end: 20181029
  2. TOBRADEX [Suspect]
     Active Substance: DEXAMETHASONE\TOBRAMYCIN
     Dosage: UNK (1 DROP IN LEFT EYE (INTERVAL UNKNOWN))
     Route: 047
     Dates: start: 20190514, end: 20190521
  3. TOBRADEX [Suspect]
     Active Substance: DEXAMETHASONE\TOBRAMYCIN
     Indication: Post procedural inflammation
     Dosage: UNK (13MAR2018-15MAR2018 1 DROP IN RIGHT EYE 6 TIMES DAILY.16MAR2018-02APR 2018 1 DROP IN RIGHT EYE
     Route: 047
     Dates: start: 20180313, end: 20180402

REACTIONS (3)
  - Retinal injury [Not Recovered/Not Resolved]
  - Optic nerve injury [Not Recovered/Not Resolved]
  - Intraocular pressure increased [Recovered/Resolved]
